FAERS Safety Report 9285725 (Version 2)
Quarter: 2013Q2

REPORT INFORMATION
  Report Type: Spontaneous
  Country: US (occurrence: US)
  Receive Date: 20130513
  Receipt Date: 20130626
  Transmission Date: 20140414
  Serious: Yes (Death, Hospitalization)
  Sender: FDA-Public Use
  Company Number: US-B.I. PHARMACEUTICALS,INC./RIDGEFIELD-2013-BI-13267BP

PATIENT
  Age: 74 Year
  Sex: Male
  Weight: 91.63 kg

DRUGS (11)
  1. PRADAXA [Suspect]
     Indication: ANTICOAGULANT THERAPY
     Dosage: 300 MG
     Route: 048
     Dates: start: 20120306, end: 20120309
  2. PRADAXA [Suspect]
     Indication: ATRIAL FIBRILLATION
  3. METFORMIN [Concomitant]
     Dosage: 1000 MG
     Route: 048
  4. LYRICA [Concomitant]
     Indication: BACK PAIN
     Dosage: 300 MG
     Route: 048
  5. COREG [Concomitant]
     Dosage: 25 MG
     Route: 048
  6. MULTAQ [Concomitant]
     Indication: ATRIAL FIBRILLATION
     Dosage: 800 MG
     Route: 048
  7. ASPIRIN [Concomitant]
     Dosage: 81 MG
     Route: 048
  8. AMBIEN [Concomitant]
     Route: 048
  9. LASIX [Concomitant]
     Dosage: 40 MG
     Route: 048
  10. POTASSIUM [Concomitant]
     Dosage: 20 MEQ
     Route: 048
  11. CRESTOR [Concomitant]
     Dosage: 10 MG
     Route: 048

REACTIONS (2)
  - Lower gastrointestinal haemorrhage [Fatal]
  - Coagulopathy [Unknown]
